FAERS Safety Report 6205715-0 (Version None)
Quarter: 2009Q2

REPORT INFORMATION
  Report Type: 
  Country: None (occurrence: None)
  Receive Date: 20090527
  Receipt Date: 20090421
  Transmission Date: 20091009
  Serious: No
  Sender: FDA-Public Use
  Company Number: US-ABBOTT-09P-163-0569480-00

PATIENT
  Sex: Female

DRUGS (20)
  1. SIMCOR [Suspect]
     Indication: LOW DENSITY LIPOPROTEIN INCREASED
     Dosage: 500/20MG DAILY AT BEDTIME
     Dates: start: 20090330
  2. SIMCOR [Suspect]
     Indication: HIGH DENSITY LIPOPROTEIN DECREASED
  3. SIMCOR [Suspect]
     Indication: BLOOD TRIGLYCERIDES INCREASED
  4. IBUPROFEN [Concomitant]
     Indication: DRUG USE FOR UNKNOWN INDICATION
     Dosage: DAILY AT BEDTIME
  5. BONIVA [Concomitant]
     Indication: DRUG USE FOR UNKNOWN INDICATION
  6. VIT C [Concomitant]
     Indication: DRUG USE FOR UNKNOWN INDICATION
  7. CHROMIUM PICOLINATE [Concomitant]
     Indication: DRUG USE FOR UNKNOWN INDICATION
  8. VIT E [Concomitant]
     Indication: DRUG USE FOR UNKNOWN INDICATION
  9. ASPIRIN [Concomitant]
     Indication: DRUG USE FOR UNKNOWN INDICATION
  10. CINNAMON [Concomitant]
     Indication: DRUG USE FOR UNKNOWN INDICATION
  11. MULTIVITAMINS WITH IRON [Concomitant]
     Indication: DRUG USE FOR UNKNOWN INDICATION
  12. BITTER MELON [Concomitant]
     Indication: DRUG USE FOR UNKNOWN INDICATION
  13. ALPHA LIPOIC ACID [Concomitant]
     Indication: DRUG USE FOR UNKNOWN INDICATION
  14. GYMNEMA SYLVESTRE [Concomitant]
     Indication: DRUG USE FOR UNKNOWN INDICATION
  15. FENUGREEK SEED [Concomitant]
     Indication: DRUG USE FOR UNKNOWN INDICATION
  16. VIT D [Concomitant]
     Indication: DRUG USE FOR UNKNOWN INDICATION
  17. BANABA LEAF [Concomitant]
     Indication: DRUG USE FOR UNKNOWN INDICATION
  18. LIQUID CALCIUM AND MAGNESIUM [Concomitant]
     Indication: DRUG USE FOR UNKNOWN INDICATION
  19. FLAXSEED OIL [Concomitant]
     Indication: DRUG USE FOR UNKNOWN INDICATION
  20. LOVAZA [Concomitant]
     Indication: DRUG USE FOR UNKNOWN INDICATION

REACTIONS (1)
  - HEADACHE [None]
